FAERS Safety Report 4410229-4 (Version None)
Quarter: 2004Q2

REPORT INFORMATION
  Report Type: 
  Country: None (occurrence: None)
  Receive Date: 20040618
  Receipt Date: 20040316
  Transmission Date: 20050107
  Serious: No
  Sender: FDA-Public Use
  Company Number: US-JNJFOC-20040304197

PATIENT
  Age: 21 Year
  Sex: Female
  Weight: 78.9259 kg

DRUGS (3)
  1. ORTHO EVRA [Suspect]
     Indication: CONTRACEPTION
     Dosage: 1 DOSE(S), 3 IN 4 WEEK, TRANSDERMAL
     Route: 062
     Dates: start: 20040222
  2. MOTRIN [Concomitant]
  3. VIOXX [Concomitant]

REACTIONS (3)
  - BREAST TENDERNESS [None]
  - NAUSEA [None]
  - VOMITING [None]
